FAERS Safety Report 16610487 (Version 1)
Quarter: 2019Q3

REPORT INFORMATION
  Report Type: Report from Study
  Country: US (occurrence: US)
  Receive Date: 20190722
  Receipt Date: 20190722
  Transmission Date: 20191004
  Serious: No
  Sender: FDA-Public Use
  Company Number: PHEH2019US030206

PATIENT
  Sex: Female

DRUGS (1)
  1. GILENYA [Suspect]
     Active Substance: FINGOLIMOD HYDROCHLORIDE
     Indication: MULTIPLE SCLEROSIS
     Dosage: 0.5 MG, UNK
     Route: 048
     Dates: start: 20190716, end: 20190717

REACTIONS (9)
  - Hot flush [Recovering/Resolving]
  - Tinnitus [Recovering/Resolving]
  - Abdominal pain upper [Recovering/Resolving]
  - Hypertension [Recovering/Resolving]
  - Flatulence [Recovering/Resolving]
  - Fatigue [Recovering/Resolving]
  - Back pain [Recovering/Resolving]
  - Paraesthesia [Recovering/Resolving]
  - Abdominal distension [Recovering/Resolving]
